FAERS Safety Report 6313264-4 (Version None)
Quarter: 2009Q3

REPORT INFORMATION
  Report Type: 
  Country: None (occurrence: None)
  Receive Date: 20090818
  Receipt Date: 20090810
  Transmission Date: 20100115
  Serious: Yes (Other)
  Sender: FDA-Public Use
  Company Number: A0583308A

PATIENT
  Age: 52 Year
  Sex: Male

DRUGS (4)
  1. FLONASE [Suspect]
     Dosage: 2SPR PER DAY
     Route: 045
     Dates: start: 20051018, end: 20051125
  2. NORITATE [Concomitant]
  3. PSEUDOEPHEDRINE HCL [Concomitant]
     Dosage: 30MG AS REQUIRED
  4. NO CONCURRENT MEDICATION [Concomitant]

REACTIONS (10)
  - CONDITION AGGRAVATED [None]
  - DRUG HYPERSENSITIVITY [None]
  - GLARE [None]
  - HALO VISION [None]
  - IMPAIRED DRIVING ABILITY [None]
  - MYOPIA [None]
  - NIGHT BLINDNESS [None]
  - PHOTOPSIA [None]
  - VISION BLURRED [None]
  - VISUAL ACUITY REDUCED [None]
